FAERS Safety Report 5273685-8 (Version None)
Quarter: 2007Q1

REPORT INFORMATION
  Report Type: 
  Country: None (occurrence: None)
  Receive Date: 20070323
  Receipt Date: 20070312
  Transmission Date: 20070707
  Serious: Yes (Other)
  Sender: FDA-Public Use
  Company Number: PHNR2007AU00707

PATIENT
  Age: 58 Year
  Sex: Female

DRUGS (3)
  1. FEMARA [Suspect]
     Dosage: 1 TABLET DAILY
     Route: 048
     Dates: start: 20060830, end: 20070227
  2. MICARDIS [Concomitant]
     Indication: HYPERTENSION
     Dosage: 300 MG, QD
  3. RANI 2 [Concomitant]
     Dosage: 20 MG, ONCE DAILY

REACTIONS (3)
  - JOINT STIFFNESS [None]
  - PAIN IN EXTREMITY [None]
  - PARAESTHESIA [None]
